FAERS Safety Report 6710768-7 (Version None)
Quarter: 2010Q2

REPORT INFORMATION
  Report Type: 
  Country: None (occurrence: None)
  Receive Date: 20100505
  Receipt Date: 20100423
  Transmission Date: 20101027
  Serious: Yes (Hospitalization)
  Sender: FDA-Public Use
  Company Number: FR-BRISTOL-MYERS SQUIBB COMPANY-15014145

PATIENT
  Age: 68 Year
  Sex: Male

DRUGS (5)
  1. ERBITUX [Suspect]
     Indication: RECTAL CANCER METASTATIC
     Route: 042
     Dates: start: 20100304, end: 20100305
  2. ANTIHISTAMINE NOS [Concomitant]
     Indication: PREMEDICATION
     Dates: start: 20100303, end: 20100303
  3. METHYLPREDNISOLONE [Concomitant]
     Indication: PREMEDICATION
     Dosage: 03MAR2010 TO UNK,60MG 05MAR2010 TO 05MAR2010,120MG
     Dates: start: 20100303, end: 20100305
  4. POLARAMINE [Concomitant]
     Indication: PREMEDICATION
     Dosage: 03 TO 03MAR2010,5MG 05 TO 05MAR2010,5MG
     Dates: start: 20100303, end: 20100305
  5. RANITIDINE HCL [Concomitant]
     Indication: PREMEDICATION
     Dates: start: 20100303

REACTIONS (4)
  - CHILLS [None]
  - EPISTAXIS [None]
  - PYREXIA [None]
  - THROMBOCYTOPENIA [None]
